FAERS Safety Report 8695836 (Version 2)
Quarter: 2012Q4

REPORT INFORMATION
  Report Type: 
  Country: US (occurrence: US)
  Receive Date: 20120731
  Receipt Date: 20121015
  Transmission Date: 20130627
  Serious: Yes (Other)
  Sender: FDA-Public Use
  Company Number: US-ELI_LILLY_AND_COMPANY-US201207006299

PATIENT
  Sex: Female

DRUGS (2)
  1. CYMBALTA [Suspect]
     Indication: DEPRESSION
     Dosage: 60 mg, qd
     Route: 048
     Dates: start: 2011
  2. CYMBALTA [Suspect]
     Dosage: 30 mg, UNK
     Dates: end: 20120725

REACTIONS (2)
  - Road traffic accident [Recovered/Resolved]
  - Syncope [Recovered/Resolved]
